FAERS Safety Report 9255225 (Version 2)
Quarter: 2013Q2

REPORT INFORMATION
  Report Type: Spontaneous
  Country: TR (occurrence: TR)
  Receive Date: 20130425
  Receipt Date: 20130425
  Transmission Date: 20140414
  Serious: Yes (Other)
  Sender: FDA-Public Use
  Company Number: TR-WATSON-2013-07051

PATIENT
  Age: 18 Year
  Sex: Male

DRUGS (7)
  1. ARIPIPRAZOLE (UNKNOWN) [Suspect]
     Indication: MAJOR DEPRESSION
     Dosage: 15 MG, DAILY
     Route: 065
  2. VENLAFAXINE HYDROCHLORIDE (UNKNOWN) [Suspect]
     Indication: MAJOR DEPRESSION
     Dosage: 75 MG, DAILY
     Route: 065
  3. FLUOXETINE HYDROCHLORIDE (UNKNOWN) [Suspect]
     Indication: MAJOR DEPRESSION
     Dosage: 40 MG, DAILY
     Route: 065
  4. FLUOXETINE HYDROCHLORIDE (UNKNOWN) [Suspect]
     Dosage: 20 MG, DAILY
     Route: 065
  5. OLANZAPINE (UNKNOWN) [Suspect]
     Indication: MAJOR DEPRESSION
     Dosage: 10 MG, DAILY
     Route: 065
  6. OLANZAPINE (UNKNOWN) [Suspect]
     Dosage: 2.5 MG, DAILY
     Route: 065
  7. BIPERIDEN [Concomitant]
     Indication: DYSTONIA
     Dosage: 4 MG, DAILY
     Route: 065

REACTIONS (6)
  - Muscle rigidity [Recovering/Resolving]
  - Dysphagia [Recovering/Resolving]
  - Dystonia [Unknown]
  - Extrapyramidal disorder [Unknown]
  - Torticollis [Unknown]
  - Bradykinesia [Unknown]
